FAERS Safety Report 7212331-0 (Version None)
Quarter: 2010Q4

REPORT INFORMATION
  Report Type: 
  Country: None (occurrence: None)
  Receive Date: 20101229
  Receipt Date: 20101221
  Transmission Date: 20110411
  Serious: Yes (Other)
  Sender: FDA-Public Use
  Company Number: 024116

PATIENT
  Sex: Male

DRUGS (4)
  1. VIMPAT [Suspect]
     Dosage: (ORAL) ; (DOSE REDUCED ORAL)
     Route: 048
     Dates: start: 20100830, end: 20100101
  2. VIMPAT [Suspect]
     Dosage: (ORAL) ; (DOSE REDUCED ORAL)
     Route: 048
     Dates: start: 20100101
  3. DUPHALAC /01526201/ [Concomitant]
  4. DIAZEPAM [Concomitant]

REACTIONS (2)
  - STRIDOR [None]
  - SUFFOCATION FEELING [None]
